FAERS Safety Report 5536747-3 (Version None)
Quarter: 2007Q4

REPORT INFORMATION
  Report Type: 
  Country: None (occurrence: None)
  Receive Date: 20071206
  Receipt Date: 20070426
  Transmission Date: 20080405
  Serious: Yes (Other)
  Sender: FDA-Public Use
  Company Number: US-AMGEN-US221907

PATIENT
  Sex: Female

DRUGS (3)
  1. ENBREL [Suspect]
     Indication: PSORIATIC ARTHROPATHY
     Route: 058
     Dates: start: 20021226, end: 20061201
  2. ENBREL [Suspect]
     Indication: PSORIASIS
  3. RAPTIVA [Concomitant]
     Route: 065
     Dates: start: 20051201

REACTIONS (7)
  - AMNESIA [None]
  - DRUG INEFFECTIVE [None]
  - FALL [None]
  - FATIGUE [None]
  - MIGRAINE [None]
  - MULTIPLE SCLEROSIS [None]
  - OPTIC NEURITIS [None]
